FAERS Safety Report 16417505 (Version 1)
Quarter: 2019Q2

REPORT INFORMATION
  Report Type: Spontaneous
  Country: US (occurrence: US)
  Receive Date: 20190611
  Receipt Date: 20190611
  Transmission Date: 20190711
  Serious: Yes (Other)
  Sender: FDA-Public Use
  Company Number: US-MYLANLABS-2019M1055031

PATIENT
  Age: 57 Year
  Sex: Female

DRUGS (6)
  1. LOMOTIL [Suspect]
     Active Substance: ATROPINE SULFATE\DIPHENOXYLATE HYDROCHLORIDE
     Indication: GASTROINTESTINAL STOMA COMPLICATION
     Route: 065
  2. OPIUM TINCTURE [Suspect]
     Active Substance: MORPHINE
     Dosage: UP-TITRATED TO 10MG FOUR TIMES A DAY
     Route: 065
  3. BENEFIBRE [Suspect]
     Active Substance: INULIN
     Indication: GASTROINTESTINAL STOMA COMPLICATION
     Route: 065
  4. OCTREOTIDE. [Suspect]
     Active Substance: OCTREOTIDE
     Indication: GASTROINTESTINAL STOMA COMPLICATION
     Dosage: THREE TIMES A DAY
     Route: 042
  5. LOPERAMIDE [Suspect]
     Active Substance: LOPERAMIDE
     Indication: GASTROINTESTINAL STOMA COMPLICATION
     Route: 065
  6. OPIUM TINCTURE [Suspect]
     Active Substance: MORPHINE
     Indication: GASTROINTESTINAL STOMA COMPLICATION
     Dosage: INITIAL DOSE NOT STATED
     Route: 065

REACTIONS (2)
  - Abdominal pain [Unknown]
  - Drug ineffective [Unknown]
